FAERS Safety Report 8070946-4 (Version None)
Quarter: 2012Q1

REPORT INFORMATION
  Report Type: 
  Country: None (occurrence: None)
  Receive Date: 20120125
  Receipt Date: 20120118
  Transmission Date: 20120608
  Serious: Yes (Hospitalization, Other)
  Sender: FDA-Public Use
  Company Number: US-MERCK-1101USA01044

PATIENT
  Age: 66 Year
  Sex: Female

DRUGS (8)
  1. VITAMINS (UNSPECIFIED) [Concomitant]
     Route: 065
     Dates: start: 19950101
  2. ALENDRONATE SODIUM [Suspect]
     Indication: OSTEOPOROSIS
     Route: 048
     Dates: start: 20090509, end: 20100930
  3. FOSAMAX [Suspect]
     Indication: OSTEOPOROSIS
     Route: 048
     Dates: start: 20021101, end: 20081222
  4. FOSAMAX [Suspect]
     Route: 048
     Dates: start: 19990628, end: 20021101
  5. FOSAMAX [Suspect]
     Indication: OSTEOPENIA
     Route: 048
     Dates: start: 20021101, end: 20081222
  6. FOSAMAX [Suspect]
     Route: 048
     Dates: start: 19990628, end: 20021101
  7. FOSAMAX [Suspect]
     Route: 048
     Dates: start: 19951129, end: 19981201
  8. FOSAMAX [Suspect]
     Route: 048
     Dates: start: 19951129, end: 19981201

REACTIONS (32)
  - PSORIASIS [None]
  - HYPOTHYROIDISM [None]
  - FAMILY STRESS [None]
  - OEDEMA PERIPHERAL [None]
  - ARTHRALGIA [None]
  - HAEMORRHOIDS [None]
  - HAEMATOCRIT DECREASED [None]
  - TEMPERATURE INTOLERANCE [None]
  - BLOOD GLUCOSE INCREASED [None]
  - FUNGAL INFECTION [None]
  - VARICOSE VEIN [None]
  - SCIATICA [None]
  - HYPERCHOLESTEROLAEMIA [None]
  - FEMUR FRACTURE [None]
  - ARTHROPATHY [None]
  - STASIS DERMATITIS [None]
  - CELLULITIS [None]
  - DEAFNESS [None]
  - BACTERIAL INFECTION [None]
  - LACERATION [None]
  - URGE INCONTINENCE [None]
  - TINNITUS [None]
  - HYPERTENSION [None]
  - PRURITUS [None]
  - NOCTURIA [None]
  - BACK PAIN [None]
  - VERTIGO [None]
  - BLOOD PRESSURE INADEQUATELY CONTROLLED [None]
  - INJURY [None]
  - LOW TURNOVER OSTEOPATHY [None]
  - OSTEOARTHRITIS [None]
  - GASTROOESOPHAGEAL REFLUX DISEASE [None]
